FAERS Safety Report 5684035-7 (Version None)
Quarter: 2008Q1

REPORT INFORMATION
  Report Type: 
  Country: None (occurrence: None)
  Receive Date: 20080328
  Receipt Date: 20080317
  Transmission Date: 20080703
  Serious: Yes (Other)
  Sender: FDA-Public Use
  Company Number: ES-AMGEN-UK267745

PATIENT
  Age: 59 Year
  Sex: Female

DRUGS (5)
  1. ARANESP [Suspect]
     Indication: ANAEMIA OF MALIGNANT DISEASE
     Route: 058
     Dates: start: 20071221, end: 20080201
  2. FLUOROURACIL [Concomitant]
     Route: 065
  3. LEUCOVORIN CALCIUM [Concomitant]
     Route: 065
  4. OXALIPLATIN [Concomitant]
     Route: 065
     Dates: start: 20080220, end: 20080220
  5. CETUXIMAB [Concomitant]
     Route: 065

REACTIONS (2)
  - DRUG ADMINISTRATION ERROR [None]
  - HYPERTENSIVE CRISIS [None]
